FAERS Safety Report 10149874 (Version 2)
Quarter: 2014Q2

REPORT INFORMATION
  Report Type: Report from Study
  Country: US (occurrence: US)
  Receive Date: 20140502
  Receipt Date: 20140502
  Transmission Date: 20141212
  Serious: Yes (Hospitalization, Other)
  Sender: FDA-Public Use
  Company Number: US-TEVA-454087USA

PATIENT
  Age: 41 Year
  Sex: Male
  Weight: 92.16 kg

DRUGS (2)
  1. CLOZAPINE [Suspect]
     Indication: SCHIZOPHRENIA, PARANOID TYPE
     Route: 048
     Dates: start: 199703
  2. EFFEXOR XR [Concomitant]
     Indication: DEPRESSION

REACTIONS (2)
  - Testicular cancer metastatic [Unknown]
  - Psychotic disorder [Unknown]
